FAERS Safety Report 15804035 (Version 1)
Quarter: 2019Q1

REPORT INFORMATION
  Report Type: Spontaneous
  Country: US (occurrence: US)
  Receive Date: 20190109
  Receipt Date: 20190109
  Transmission Date: 20190417
  Serious: Yes (Hospitalization)
  Sender: FDA-Public Use
  Company Number: None

PATIENT
  Age: 63 Year
  Sex: Female
  Weight: 58.5 kg

DRUGS (1)
  1. MOVANTIK [Suspect]
     Active Substance: NALOXEGOL OXALATE
     Indication: CONSTIPATION
     Dosage: ?          QUANTITY:1 TABLET(S);?
     Route: 048
     Dates: start: 20190107, end: 20190107

REACTIONS (8)
  - Nausea [None]
  - Feeling hot [None]
  - Abdominal pain upper [None]
  - Muscle spasms [None]
  - Diarrhoea [None]
  - Burning sensation [None]
  - Speech disorder [None]
  - Muscle tone disorder [None]

NARRATIVE: CASE EVENT DATE: 20190107
